FAERS Safety Report 25151067 (Version 1)
Quarter: 2025Q2

REPORT INFORMATION
  Report Type: Spontaneous
  Country: GR (occurrence: GR)
  Receive Date: 20250402
  Receipt Date: 20250402
  Transmission Date: 20250716
  Serious: Yes (Hospitalization)
  Sender: ELI LILLY AND CO
  Company Number: GR-ELI_LILLY_AND_COMPANY-GR202503020774

PATIENT
  Age: 28 Year
  Sex: Female

DRUGS (1)
  1. TALTZ [Suspect]
     Active Substance: IXEKIZUMAB
     Indication: Psoriasis
     Dosage: 80 MG, MONTHLY (1/M)
     Route: 058
     Dates: start: 2023

REACTIONS (2)
  - Splenomegaly [Not Recovered/Not Resolved]
  - Hypertension [Unknown]

NARRATIVE: CASE EVENT DATE: 20250101
